FAERS Safety Report 22242884 (Version 1)
Quarter: 2023Q2

REPORT INFORMATION
  Report Type: Spontaneous
  Country: US (occurrence: None)
  Receive Date: 20230424
  Receipt Date: 20230424
  Transmission Date: 20230722
  Serious: Yes (Hospitalization)
  Sender: FDA-Public Use
  Company Number: US-ARIS GLOBAL-SUP202304-001499

PATIENT
  Age: 66 Year
  Sex: Female

DRUGS (2)
  1. TOPIRAMATE [Suspect]
     Active Substance: TOPIRAMATE
     Indication: Migraine
  2. TOPIRAMATE [Suspect]
     Active Substance: TOPIRAMATE
     Indication: Seizure

REACTIONS (2)
  - Delusion [Recovered/Resolved]
  - Hallucination [Recovered/Resolved]
